FAERS Safety Report 8644475 (Version 2)
Quarter: 2013Q4

REPORT INFORMATION
  Report Type: Spontaneous
  Country: US (occurrence: US)
  Receive Date: 20120629
  Receipt Date: 20131209
  Transmission Date: 20140711
  Serious: No
  Sender: FDA-Public Use
  Company Number: US-PFIZER INC-2012153646

PATIENT
  Age: 75 Year
  Sex: Female
  Weight: 81.7 kg

DRUGS (1)
  1. AZITHROMYCIN [Suspect]
     Dosage: 250 MG TWO TABLETS DAILY FIRST DAY AND THEN 1 DAILY FOR FOUR DAYS

REACTIONS (1)
  - Drug ineffective [Unknown]
